FAERS Safety Report 5606019-7 (Version None)
Quarter: 2008Q1

REPORT INFORMATION
  Report Type: 
  Country: None (occurrence: None)
  Receive Date: 20080123
  Receipt Date: 20080123
  Transmission Date: 20080703
  Serious: Yes (Other)
  Sender: FDA-Public Use
  Company Number: None

PATIENT
  Age: 64 Year
  Sex: Female
  Weight: 106.5953 kg

DRUGS (8)
  1. AMLODIPINE [Suspect]
     Indication: BLOOD CHOLESTEROL INCREASED
     Dosage: 5MG ONE DAILY PO
     Route: 048
     Dates: start: 20071225, end: 20080115
  2. AMLODIPINE [Suspect]
     Indication: HYPERTENSION
     Dosage: 5MG ONE DAILY PO
     Route: 048
     Dates: start: 20071225, end: 20080115
  3. DIOVAN [Concomitant]
  4. INSULIN [Concomitant]
  5. LEVOTHYROXINE SODIUM [Concomitant]
  6. ZYRTEC [Concomitant]
  7. ACIPHEX [Concomitant]
  8. PREMARIN [Concomitant]

REACTIONS (4)
  - DIARRHOEA [None]
  - FAECAL INCONTINENCE [None]
  - FAECES DISCOLOURED [None]
  - INCORRECT DOSE ADMINISTERED [None]
